FAERS Safety Report 7643163-7 (Version None)
Quarter: 2011Q3

REPORT INFORMATION
  Report Type: 
  Country: None (occurrence: None)
  Receive Date: 20110729
  Receipt Date: 20110720
  Transmission Date: 20111222
  Serious: Yes (Hospitalization)
  Sender: FDA-Public Use
  Company Number: US-BIOGENIDEC-2011BI013897

PATIENT
  Age: 59 Year
  Sex: Female

DRUGS (3)
  1. AVONEX [Suspect]
     Indication: MULTIPLE SCLEROSIS
     Route: 030
     Dates: start: 20101109, end: 20101130
  2. AVONEX [Suspect]
     Route: 030
     Dates: start: 19990101, end: 20020902
  3. AVONEX [Suspect]
     Route: 030
     Dates: start: 20040328

REACTIONS (3)
  - FALL [None]
  - BURNS THIRD DEGREE [None]
  - BURNS SECOND DEGREE [None]
